FAERS Safety Report 11277135 (Version 1)
Quarter: 2015Q3

REPORT INFORMATION
  Report Type: Report from Study
  Country: GT (occurrence: GT)
  Receive Date: 20150716
  Receipt Date: 20150716
  Transmission Date: 20151125
  Serious: Yes (Hospitalization, Other)
  Sender: FDA-Public Use
  Company Number: GT-ABBVIE-15K-069-1412899-00

PATIENT
  Age: 72 Year
  Sex: Female
  Weight: 40.86 kg

DRUGS (1)
  1. HUMIRA [Suspect]
     Active Substance: ADALIMUMAB
     Indication: ANKYLOSING SPONDYLITIS
     Route: 058
     Dates: start: 20100525, end: 2015

REACTIONS (17)
  - Renal failure [Unknown]
  - Asthenia [Not Recovered/Not Resolved]
  - Vomiting [Recovered/Resolved]
  - Hypertension [Not Recovered/Not Resolved]
  - Fatigue [Not Recovered/Not Resolved]
  - Fall [Recovered/Resolved]
  - Dyspnoea [Not Recovered/Not Resolved]
  - Chest injury [Unknown]
  - Spinal deformity [Not Recovered/Not Resolved]
  - Myocardial infarction [Recovered/Resolved]
  - Loss of consciousness [Recovered/Resolved]
  - Feeling abnormal [Not Recovered/Not Resolved]
  - Wound [Recovered/Resolved]
  - Vertigo [Not Recovered/Not Resolved]
  - Tachycardia [Not Recovered/Not Resolved]
  - Cardiomegaly [Unknown]
  - Syncope [Recovered/Resolved]

NARRATIVE: CASE EVENT DATE: 2013
